FAERS Safety Report 7289299-4 (Version None)
Quarter: 2011Q1

REPORT INFORMATION
  Report Type: 
  Country: None (occurrence: None)
  Receive Date: 20110211
  Receipt Date: 20110131
  Transmission Date: 20110831
  Serious: Yes (Other)
  Sender: FDA-Public Use
  Company Number: US-ELI_LILLY_AND_COMPANY-US201102001075

PATIENT
  Age: 76 Year
  Sex: Female

DRUGS (7)
  1. BETA BLOCKING AGENTS [Concomitant]
  2. ISOSORBIDE DINITRATE [Concomitant]
  3. ACE INHIBITORS [Concomitant]
  4. EFFIENT [Suspect]
     Indication: STENT PLACEMENT
     Dosage: 10 MG, UNKNOWN
     Dates: start: 20101120, end: 20110131
  5. NORVASC [Concomitant]
  6. POTASSIUM [Concomitant]
  7. PEPCID [Concomitant]

REACTIONS (3)
  - TONGUE PIGMENTATION [None]
  - RASH [None]
  - SWOLLEN TONGUE [None]
